FAERS Safety Report 8924477 (Version 1)
Quarter: 2012Q4

REPORT INFORMATION
  Report Type: 
  Country: US (occurrence: US)
  Receive Date: 20121126
  Receipt Date: 20121126
  Transmission Date: 20130627
  Serious: Yes (Other)
  Sender: FDA-Public Use
  Company Number: PHHY2012US106491

PATIENT
  Age: 23 Year
  Sex: Male

DRUGS (1)
  1. MINOCYCLINE [Suspect]

REACTIONS (6)
  - Polyarteritis nodosa [Unknown]
  - Hypertension [Unknown]
  - Weight decreased [Unknown]
  - Rash [Unknown]
  - Headache [Unknown]
  - Renal failure [Unknown]
